FAERS Safety Report 9056268 (Version 2)
Quarter: 2013Q2

REPORT INFORMATION
  Report Type: Spontaneous
  Country: US (occurrence: US)
  Receive Date: 20130205
  Receipt Date: 20130417
  Transmission Date: 20140414
  Serious: Yes (Hospitalization, Other)
  Sender: FDA-Public Use
  Company Number: US-BAYER-2013-015004

PATIENT
  Age: 34 Year
  Sex: Female
  Weight: 74.83 kg

DRUGS (5)
  1. YASMIN [Suspect]
     Indication: MIGRAINE
  2. YAZ [Suspect]
  3. TOPAMAX [Concomitant]
     Indication: MIGRAINE
     Dosage: 50 MG, BID
     Dates: start: 20070110
  4. LEVOTHYROXINE [Concomitant]
     Indication: THYROIDITIS
     Dosage: 75 MCG DAILY
     Dates: start: 20070110
  5. IBUPROFEN [IBUPROFEN] [Concomitant]

REACTIONS (2)
  - Pulmonary embolism [None]
  - Deep vein thrombosis [None]
